FAERS Safety Report 18244055 (Version 1)
Quarter: 2020Q3

REPORT INFORMATION
  Report Type: Spontaneous
  Country: US (occurrence: US)
  Receive Date: 20200908
  Receipt Date: 20200908
  Transmission Date: 20201103
  Serious: No
  Sender: FDA-Public Use
  Company Number: US-PFIZER INC-2020345407

PATIENT
  Age: 65 Year
  Sex: Female

DRUGS (3)
  1. UNISOM SLEEP [Suspect]
     Active Substance: DOXYLAMINE SUCCINATE
     Dosage: UNK
  2. ADVIL PM [Suspect]
     Active Substance: DIPHENHYDRAMINE CITRATE\IBUPROFEN
     Dosage: UNK
  3. GOODYS PM [Suspect]
     Active Substance: ACETAMINOPHEN\DIPHENHYDRAMINE CITRATE
     Dosage: UNK

REACTIONS (1)
  - Drug ineffective [Unknown]
